FAERS Safety Report 9437717 (Version 2)
Quarter: 2013Q3

REPORT INFORMATION
  Report Type: Spontaneous
  Country: GB (occurrence: None)
  Receive Date: 20130731
  Receipt Date: 20130814
  Transmission Date: 20140515
  Serious: Yes (Other)
  Sender: FDA-Public Use
  Company Number: GB-DEXPHARM-20130441

PATIENT
  Age: 38 Year
  Sex: Male

DRUGS (2)
  1. PERIOCHIP [Suspect]
     Dates: end: 20130703
  2. IBUPROFEN [Concomitant]

REACTIONS (5)
  - Gingival recession [None]
  - Gingival inflammation [None]
  - Stomatitis necrotising [None]
  - Gingival pain [None]
  - No reaction on previous exposure to drug [None]
